FAERS Safety Report 14795236 (Version 7)
Quarter: 2020Q1

REPORT INFORMATION
  Report Type: Spontaneous
  Country: US (occurrence: US)
  Receive Date: 20180423
  Receipt Date: 20200326
  Transmission Date: 20200409
  Serious: Yes (Hospitalization)
  Sender: FDA-Public Use
  Company Number: US-ACTELION-A-US2018-167659

PATIENT
  Age: 23 Year
  Sex: Male
  Weight: 70.75 kg

DRUGS (5)
  1. REMODULIN [Concomitant]
     Active Substance: TREPROSTINIL
  2. XARELTO [Concomitant]
     Active Substance: RIVAROXABAN
  3. ADCIRCA [Suspect]
     Active Substance: TADALAFIL
     Indication: PRODUCT USED FOR UNKNOWN INDICATION
     Dosage: UNK
     Route: 065
     Dates: end: 202003
  4. SILDENAFIL. [Concomitant]
     Active Substance: SILDENAFIL
  5. OPSUMIT [Suspect]
     Active Substance: MACITENTAN
     Indication: PULMONARY HYPERTENSION
     Dosage: 10 MG, QD
     Route: 048
     Dates: start: 20140423

REACTIONS (13)
  - Urine output decreased [Unknown]
  - Haematemesis [Unknown]
  - Fluid overload [Unknown]
  - Malaise [Unknown]
  - Asthenia [Unknown]
  - Device leakage [Unknown]
  - Hospitalisation [Unknown]
  - Headache [Unknown]
  - Device breakage [Unknown]
  - Influenza [Not Recovered/Not Resolved]
  - Dyspnoea [Unknown]
  - Lethargy [Unknown]
  - Device malfunction [Unknown]

NARRATIVE: CASE EVENT DATE: 20180131
